FAERS Safety Report 22399618 (Version 1)
Quarter: 2023Q2

REPORT INFORMATION
  Report Type: Other
  Country: HR (occurrence: None)
  Receive Date: 20230602
  Receipt Date: 20230602
  Transmission Date: 20230722
  Serious: Yes (Other)
  Sender: FDA-Public Use
  Company Number: HR-ROCHE-3360706

PATIENT

DRUGS (1)
  1. ATEZOLIZUMAB [Suspect]
     Active Substance: ATEZOLIZUMAB
     Indication: Transitional cell carcinoma metastatic
     Route: 065

REACTIONS (4)
  - Extrapyramidal disorder [Unknown]
  - Hypothyroidism [Unknown]
  - Skin toxicity [Unknown]
  - Adrenal insufficiency [Unknown]
